FAERS Safety Report 8346776-2 (Version None)
Quarter: 2012Q2

REPORT INFORMATION
  Report Type: 
  Country: None (occurrence: None)
  Receive Date: 20120508
  Receipt Date: 20120508
  Transmission Date: 20120825
  Serious: No
  Sender: FDA-Public Use
  Company Number: None

PATIENT
  Sex: Female

DRUGS (1)
  1. SYLATRON [Suspect]
     Dosage: 436 MCG 9 WEEK SQ
     Route: 058

REACTIONS (2)
  - INJECTION SITE RASH [None]
  - INJECTION SITE HAEMATOMA [None]
